FAERS Safety Report 13668273 (Version 1)
Quarter: 2017Q2

REPORT INFORMATION
  Report Type: Spontaneous
  Country: US (occurrence: US)
  Receive Date: 20170619
  Receipt Date: 20170619
  Transmission Date: 20170830
  Serious: Yes (Disabling, Congenital Anomaly)
  Sender: FDA-Public Use
  Company Number: None

PATIENT
  Age: 32 Year
  Sex: Female
  Weight: 65.7 kg

DRUGS (2)
  1. ZYPREXA [Suspect]
     Active Substance: OLANZAPINE
     Indication: PRODUCT USED FOR UNKNOWN INDICATION
     Dosage: ?          QUANTITY:3 INJECTION(S);?
     Route: 008
     Dates: start: 20151019, end: 20151019
  2. HALDOL [Suspect]
     Active Substance: HALOPERIDOL
     Indication: PRODUCT USED FOR UNKNOWN INDICATION
     Dosage: QUANTITY:3 INJECTION(S);?
     Route: 008
     Dates: start: 20170407, end: 20170407

REACTIONS (10)
  - Vomiting [None]
  - Product quality issue [None]
  - Maternal exposure timing unspecified [None]
  - Swollen tongue [None]
  - Insomnia [None]
  - Musculoskeletal stiffness [None]
  - Drooling [None]
  - Trismus [None]
  - Blindness transient [None]
  - Deafness transitory [None]

NARRATIVE: CASE EVENT DATE: 20170407
